FAERS Safety Report 6126003-7 (Version None)
Quarter: 2009Q1

REPORT INFORMATION
  Report Type: 
  Country: None (occurrence: None)
  Receive Date: 20090320
  Receipt Date: 20090309
  Transmission Date: 20090719
  Serious: Yes (Other)
  Sender: FDA-Public Use
  Company Number: DE-ELI_LILLY_AND_COMPANY-DE200902001241

PATIENT
  Age: 62 Year
  Sex: Male

DRUGS (5)
  1. BYETTA [Suspect]
     Indication: TYPE 2 DIABETES MELLITUS
     Dosage: 5 UG, 2/D
     Route: 058
     Dates: start: 20080219
  2. METFORMIN HCL [Concomitant]
     Dosage: 0.5 D/F, 2/D
     Route: 065
  3. GLIB [Concomitant]
     Dosage: 1.5 D/F, UNKNOWN
     Route: 065
  4. ALLOPURINOL [Concomitant]
     Dosage: UNK, DAILY (1/D)
     Route: 048
  5. ENALAPRIL [Concomitant]
     Dosage: UNK, DAILY (1/D)
     Route: 048

REACTIONS (1)
  - COLON CANCER [None]
